FAERS Safety Report 5988670-8 (Version None)
Quarter: 2008Q4

REPORT INFORMATION
  Report Type: 
  Country: None (occurrence: None)
  Receive Date: 20081208
  Receipt Date: 20081208
  Transmission Date: 20090506
  Serious: Yes (Hospitalization)
  Sender: FDA-Public Use
  Company Number: None

PATIENT
  Sex: Male
  Weight: 81.7 kg

DRUGS (2)
  1. CARBOPLATIN [Suspect]
     Dosage: 609 MG
  2. TAXOL [Suspect]
     Dosage: 303 MG

REACTIONS (1)
  - NEUTROPHIL COUNT DECREASED [None]
